FAERS Safety Report 6103292-6 (Version None)
Quarter: 2009Q1

REPORT INFORMATION
  Report Type: 
  Country: None (occurrence: None)
  Receive Date: 20090302
  Receipt Date: 20090212
  Transmission Date: 20090719
  Serious: Yes (Death)
  Sender: FDA-Public Use
  Company Number: 1000003746

PATIENT
  Age: 40 Year
  Sex: Male

DRUGS (6)
  1. ESCITALOPRAM [Suspect]
     Dosage: ORAL
     Route: 048
  2. ATENOLOL [Suspect]
  3. AMLODIPINE [Suspect]
  4. TRAZODONE HCL [Suspect]
  5. DULOXETINE HYDROCHLORIDE [Suspect]
  6. LOSARTAN [Suspect]

REACTIONS (2)
  - COMPLETED SUICIDE [None]
  - MULTIPLE DRUG OVERDOSE INTENTIONAL [None]
